FAERS Safety Report 6034457-X (Version None)
Quarter: 2009Q1

REPORT INFORMATION
  Report Type: 
  Country: None (occurrence: None)
  Receive Date: 20090108
  Receipt Date: 20081229
  Transmission Date: 20090719
  Serious: Yes (Other)
  Sender: FDA-Public Use
  Company Number: 100421

PATIENT
  Age: 44 Year
  Sex: Male
  Weight: 93.441 kg

DRUGS (1)
  1. NITETIME FREE CHERRY 6 HOUR LIQUID [Suspect]
     Dosage: 2 TBSP/X2/ORAL
     Route: 048
     Dates: start: 20080918, end: 20080918

REACTIONS (17)
  - ARTHRALGIA [None]
  - ASTHENIA [None]
  - BIOPSY SKIN ABNORMAL [None]
  - BLOOD 1,25-DIHYDROXYCHOLECALCIFEROL DECREASED [None]
  - DYSPHAGIA [None]
  - EPISTAXIS [None]
  - FATIGUE [None]
  - PAIN OF SKIN [None]
  - PLATELET COUNT INCREASED [None]
  - PYREXIA [None]
  - RASH [None]
  - RED BLOOD CELL COUNT DECREASED [None]
  - SKIN DISORDER [None]
  - SKIN EXFOLIATION [None]
  - TONGUE DISORDER [None]
  - VITAMIN B12 DECREASED [None]
  - WHITE BLOOD CELL COUNT INCREASED [None]
